FAERS Safety Report 9408997 (Version 1)
Quarter: 2013Q1

REPORT INFORMATION
  Report Type: Spontaneous
  Country: TR (occurrence: None)
  Receive Date: 20130319
  Receipt Date: 20130319
  Transmission Date: 20140127
  Serious: Yes (Hospitalization)
  Sender: FDA-Public Use
  Company Number: PHHY2009TR09422

PATIENT
  Age: 33 Year
  Sex: Male

DRUGS (1)
  1. LIORESAL [Suspect]
     Indication: MUSCLE SPASTICITY
     Route: 037

REACTIONS (13)
  - Coma [None]
  - Dyspnoea [None]
  - Haemodynamic instability [None]
  - Hypotonia [None]
  - Hypertension [None]
  - Bradycardia [None]
  - Grand mal convulsion [None]
  - Unresponsive to stimuli [None]
  - Mydriasis [None]
  - Respiratory rate decreased [None]
  - Blood pressure decreased [None]
  - Overdose [None]
  - Device malfunction [None]
